FAERS Safety Report 7311151-6 (Version None)
Quarter: 2011Q1

REPORT INFORMATION
  Report Type: 
  Country: None (occurrence: None)
  Receive Date: 20110224
  Receipt Date: 20110217
  Transmission Date: 20110831
  Serious: Yes (Other)
  Sender: FDA-Public Use
  Company Number: CA-ROCHE-760773

PATIENT
  Sex: Male

DRUGS (7)
  1. PLAQUENIL [Concomitant]
  2. METHOTREXATE [Concomitant]
  3. ASCORBIC ACID [Concomitant]
  4. TYLENOL [Concomitant]
     Dosage: DRUG: TYLENOL EXTRA STRENGTH, FREQUENCY: PRN
  5. TOCILIZUMAB [Suspect]
     Indication: RHEUMATOID ARTHRITIS
     Dosage: FORM: INFUSION
     Route: 042
     Dates: start: 20101222
  6. ETODOLAC [Concomitant]
  7. FOLIC ACID [Concomitant]

REACTIONS (2)
  - SPEECH DISORDER [None]
  - MEMORY IMPAIRMENT [None]
